FAERS Safety Report 6468287-1 (Version None)
Quarter: 2009Q4

REPORT INFORMATION
  Report Type: 
  Country: None (occurrence: None)
  Receive Date: 20091130
  Receipt Date: 20091111
  Transmission Date: 20100525
  Serious: Yes (Other)
  Sender: FDA-Public Use
  Company Number: DSJ-2009-15002

PATIENT
  Age: 76 Year
  Sex: Male
  Weight: 63 kg

DRUGS (7)
  1. OLMESARTAN MEDOXOMIL [Suspect]
     Indication: HYPERTENSION
     Dosage: 10 MG (10 MG, 1 IN 1), PER ORAL
     Route: 048
     Dates: start: 20050610, end: 20091106
  2. MAGLAX  (MAGNESIUM OXIDE) (TABLET) (MAGNESIUM OXIDE) [Concomitant]
  3. ALOSEN (ACHILLEA MILLEFOLIUM, SENNA ALEXANDRINA LEAF, SENNA ALEXANDRIN [Concomitant]
  4. PLETAAL (CILOSTAZOL) (TABLET) (CILOSTAZOL) [Concomitant]
  5. OMEPRAZOLE [Concomitant]
  6. ARICEPT [Concomitant]
  7. CEROCRAL  IFENPRODIL TARTRATE) [Concomitant]

REACTIONS (5)
  - FAECAL INCONTINENCE [None]
  - FALL [None]
  - HYPOGLYCAEMIA [None]
  - SYNCOPE [None]
  - URINARY INCONTINENCE [None]
